FAERS Safety Report 26089727 (Version 1)
Quarter: 2025Q4

REPORT INFORMATION
  Report Type: Spontaneous
  Country: CN (occurrence: CN)
  Receive Date: 20251125
  Receipt Date: 20251125
  Transmission Date: 20260118
  Serious: Yes (Hospitalization)
  Sender: ABBVIE
  Company Number: CN-ABBVIE-6562915

PATIENT
  Age: 69 Year
  Sex: Male
  Weight: 66 kg

DRUGS (3)
  1. VENCLEXTA [Suspect]
     Active Substance: VENETOCLAX
     Indication: Acute myeloid leukaemia
     Route: 048
     Dates: start: 20251111, end: 20251117
  2. AZACITIDINE [Suspect]
     Active Substance: AZACITIDINE
     Indication: Acute myeloid leukaemia
     Route: 058
     Dates: start: 20251111, end: 20251117
  3. STERILE WATER FOR INJECTION [Concomitant]
     Active Substance: WATER
     Indication: Product used for unknown indication

REACTIONS (2)
  - Myelosuppression [Unknown]
  - Fatigue [Unknown]

NARRATIVE: CASE EVENT DATE: 20251115
